FAERS Safety Report 22276399 (Version 1)
Quarter: 2023Q2

REPORT INFORMATION
  Report Type: Spontaneous
  Country: US (occurrence: US)
  Receive Date: 20230503
  Receipt Date: 20230503
  Transmission Date: 20230721
  Serious: Yes (Hospitalization)
  Sender: FDA-Public Use
  Company Number: US-BANNER LIFE SCIENCES, LLC-2023BAN000032

PATIENT

DRUGS (1)
  1. BAFIERTAM [Suspect]
     Active Substance: MONOMETHYL FUMARATE
     Indication: Product used for unknown indication
     Dosage: 190 MILLIGRAM, BID 2 CAPSCULE 2 TIMES A DAY
     Route: 048

REACTIONS (3)
  - Small intestinal obstruction [Unknown]
  - Flushing [Recovered/Resolved]
  - Product dose omission issue [Unknown]
